FAERS Safety Report 21695593 (Version 2)
Quarter: 2023Q1

REPORT INFORMATION
  Report Type: Report from Study
  Country: US (occurrence: US)
  Receive Date: 20221207
  Receipt Date: 20230130
  Transmission Date: 20230417
  Serious: Yes (Other)
  Sender: FDA-Public Use
  Company Number: US-ABBVIE-22K-163-4461866-00

PATIENT
  Sex: Female

DRUGS (3)
  1. HUMIRA [Suspect]
     Active Substance: ADALIMUMAB
     Indication: Hidradenitis
     Dosage: CITRATE FREE
     Route: 058
  2. HUMIRA [Suspect]
     Active Substance: ADALIMUMAB
     Route: 058
  3. HUMIRA [Suspect]
     Active Substance: ADALIMUMAB
     Route: 058

REACTIONS (15)
  - Surgery [Unknown]
  - Hidradenitis [Unknown]
  - Wrong technique in product usage process [Unknown]
  - Incorrect dose administered [Unknown]
  - Visual impairment [Unknown]
  - Injection site pain [Unknown]
  - Nausea [Unknown]
  - Hidradenitis [Not Recovered/Not Resolved]
  - Unevaluable event [Not Recovered/Not Resolved]
  - Stress [Unknown]
  - Fungal infection [Unknown]
  - Uterine leiomyoma [Unknown]
  - Breast disorder [Unknown]
  - Abscess [Unknown]
  - Endometriosis [Unknown]

NARRATIVE: CASE EVENT DATE: 20200101
